FAERS Safety Report 23489817 (Version 1)
Quarter: 2024Q1

REPORT INFORMATION
  Report Type: Spontaneous
  Country: US (occurrence: None)
  Receive Date: 20240206
  Receipt Date: 20240206
  Transmission Date: 20240409
  Serious: No
  Sender: FDA-Public Use
  Company Number: US-ROCHE-3274341

PATIENT
  Sex: Female

DRUGS (3)
  1. XOLAIR [Suspect]
     Active Substance: OMALIZUMAB
     Indication: Asthma
     Route: 058
     Dates: start: 20190222
  2. XOLAIR [Suspect]
     Active Substance: OMALIZUMAB
     Indication: Interstitial lung disease
     Dosage: VIAL
     Route: 058
     Dates: start: 201902
  3. XOLAIR [Suspect]
     Active Substance: OMALIZUMAB
     Indication: Pulmonary fibrosis

REACTIONS (6)
  - Diarrhoea [Unknown]
  - Abdominal discomfort [Unknown]
  - Gastric infection [Recovered/Resolved]
  - Abdominal pain upper [Unknown]
  - Abdominal pain lower [Unknown]
  - Pelvic pain [Unknown]
